FAERS Safety Report 7093659-4 (Version None)
Quarter: 2010Q4

REPORT INFORMATION
  Report Type: 
  Country: None (occurrence: None)
  Receive Date: 20101110
  Receipt Date: 20090909
  Transmission Date: 20110411
  Serious: No
  Sender: FDA-Public Use
  Company Number: US-KINGPHARMUSA00001-K200901119

PATIENT
  Sex: Female
  Weight: 72.562 kg

DRUGS (1)
  1. EPIPEN JR. [Suspect]
     Dosage: 0.15 MG, SINGLE
     Dates: start: 19920101, end: 19920101

REACTIONS (1)
  - ACCIDENTAL EXPOSURE [None]
